FAERS Safety Report 18227098 (Version 6)
Quarter: 2021Q3

REPORT INFORMATION
  Report Type: Spontaneous
  Country: US (occurrence: US)
  Receive Date: 20200903
  Receipt Date: 20210722
  Transmission Date: 20211014
  Serious: Yes (Other)
  Sender: FDA-Public Use
  Company Number: US-PFIZER INC-2020339543

PATIENT
  Age: 70 Year
  Sex: Female

DRUGS (1)
  1. IBRANCE [Suspect]
     Active Substance: PALBOCICLIB
     Dosage: 100 MG, CYCLIC (TAKE 1 TAB DAILY 21 DAYS)

REACTIONS (4)
  - Neoplasm progression [Unknown]
  - Off label use [Unknown]
  - Decreased immune responsiveness [Unknown]
  - COVID-19 [Unknown]
